FAERS Safety Report 13551334 (Version 6)
Quarter: 2018Q2

REPORT INFORMATION
  Report Type: Spontaneous
  Country: DK (occurrence: DK)
  Receive Date: 20170516
  Receipt Date: 20180601
  Transmission Date: 20180711
  Serious: Yes (Hospitalization, Disabling, Other)
  Sender: FDA-Public Use
  Company Number: DK-TEVA-767214ISR

PATIENT
  Age: 26 Year
  Sex: Male

DRUGS (10)
  1. ANTABUS [Suspect]
     Active Substance: DISULFIRAM
     Dosage: 800 MILLIGRAM DAILY;
     Route: 048
     Dates: start: 20160804
  2. ANTABUS [Suspect]
     Active Substance: DISULFIRAM
     Dosage: 800 MILLIGRAM DAILY;
     Route: 048
     Dates: start: 20160815
  3. MIRTAZAPIN [Concomitant]
     Active Substance: MIRTAZAPINE
     Indication: DEPRESSION
     Dosage: NOCTE
     Dates: start: 20160811
  4. ANTABUS [Suspect]
     Active Substance: DISULFIRAM
     Indication: ALCOHOL ABUSE
     Dosage: 800 MILLIGRAM DAILY;
     Route: 048
     Dates: start: 20160726, end: 20160728
  5. ANTABUS [Suspect]
     Active Substance: DISULFIRAM
     Dosage: 800 MILLIGRAM DAILY;
     Route: 048
     Dates: start: 20160818
  6. ANTABUS [Suspect]
     Active Substance: DISULFIRAM
     Dosage: 800 MILLIGRAM DAILY;
     Route: 048
     Dates: start: 20160811
  7. ANTABUS [Suspect]
     Active Substance: DISULFIRAM
     Dosage: 800 MILLIGRAM DAILY;
     Route: 048
     Dates: start: 20160901
  8. ANTABUS [Suspect]
     Active Substance: DISULFIRAM
     Dosage: 400 MILLIGRAM DAILY;
     Route: 048
     Dates: start: 20160801
  9. ANTABUS [Suspect]
     Active Substance: DISULFIRAM
     Dosage: 800 MILLIGRAM DAILY;
     Route: 048
     Dates: start: 20160808
  10. ANTABUS [Suspect]
     Active Substance: DISULFIRAM
     Dosage: 800 MILLIGRAM DAILY;
     Route: 048
     Dates: start: 20160825

REACTIONS (26)
  - Change of bowel habit [Recovered/Resolved]
  - Hepatic enzyme increased [Recovered/Resolved]
  - Sleep disorder [Unknown]
  - Dizziness [Unknown]
  - Anxiety [Unknown]
  - Pyrexia [Unknown]
  - Jaundice [Recovered/Resolved]
  - Hepatic failure [Recovered/Resolved]
  - Haemodialysis [Recovered/Resolved]
  - Pyrexia [Recovered/Resolved]
  - Crying [Unknown]
  - Endotracheal intubation [Recovered/Resolved]
  - Abdominal pain upper [Unknown]
  - Negative thoughts [Unknown]
  - Hepatic function abnormal [Recovered/Resolved]
  - Decubitus ulcer [Unknown]
  - International normalised ratio increased [Recovered/Resolved]
  - Fatigue [Unknown]
  - Hypersomnia [Unknown]
  - Seizure [Recovering/Resolving]
  - Suicidal ideation [Unknown]
  - Blunted affect [Recovered/Resolved]
  - Coma hepatic [Recovered/Resolved]
  - Abdominal pain [Recovered/Resolved]
  - Liver transplant [Recovered/Resolved]
  - Dyspnoea [Unknown]

NARRATIVE: CASE EVENT DATE: 20160818
